FAERS Safety Report 11001435 (Version 2)
Quarter: 2015Q2

REPORT INFORMATION
  Report Type: Spontaneous
  Country: US (occurrence: US)
  Receive Date: 20150408
  Receipt Date: 20150429
  Transmission Date: 20150821
  Serious: No
  Sender: FDA-Public Use
  Company Number: US-EISAI MEDICAL RESEARCH-EC-2015-005515

PATIENT
  Age: 31 Year
  Sex: Female
  Weight: 68.5 kg

DRUGS (2)
  1. FYCOMPA [Suspect]
     Active Substance: PERAMPANEL
     Indication: SEIZURE
     Route: 048
     Dates: start: 20150120, end: 20150122
  2. 3 OTHER ANTIEPILEPTIC^S [Concomitant]
     Indication: SEIZURE
     Dosage: UNKNOWN
     Route: 065

REACTIONS (1)
  - Dizziness [Recovered/Resolved]

NARRATIVE: CASE EVENT DATE: 20150120
